FAERS Safety Report 20865565 (Version 1)
Quarter: 2022Q2

REPORT INFORMATION
  Report Type: Spontaneous
  Country: GB (occurrence: GB)
  Receive Date: 20220524
  Receipt Date: 20220524
  Transmission Date: 20220720
  Serious: Yes (Hospitalization, Other)
  Sender: FDA-Public Use
  Company Number: GB-BRISTOL-MYERS SQUIBB COMPANY-2022-038591

PATIENT
  Age: 82 Year
  Sex: Female

DRUGS (8)
  1. REVLIMID [Suspect]
     Active Substance: LENALIDOMIDE
     Indication: Product used for unknown indication
  2. DEXAMETHASONE [Concomitant]
     Active Substance: DEXAMETHASONE
  3. DEXAMETHASONE [Concomitant]
     Active Substance: DEXAMETHASONE
  4. ELIQUIS [Concomitant]
     Active Substance: APIXABAN
  5. ELIQUIS [Concomitant]
     Active Substance: APIXABAN
  6. ACYCLOVIR [Concomitant]
     Active Substance: ACYCLOVIR
  7. ACICLOVIR EG [ACICLOVIR] [Concomitant]
  8. OMEPRAZOLE [Concomitant]
     Active Substance: OMEPRAZOLE

REACTIONS (2)
  - Cerebrovascular accident [Unknown]
  - Illness [Unknown]

NARRATIVE: CASE EVENT DATE: 20220508
